FAERS Safety Report 25999475 (Version 1)
Quarter: 2025Q4

REPORT INFORMATION
  Report Type: Spontaneous
  Country: US (occurrence: US)
  Receive Date: 20251105
  Receipt Date: 20251105
  Transmission Date: 20260117
  Serious: Yes (Other)
  Sender: BRISTOL-MYERS SQUIBB COMPANY
  Company Number: US-BRISTOL-MYERS SQUIBB COMPANY-2025-145889

PATIENT
  Age: 50 Year
  Sex: Female
  Weight: 83.91 kg

DRUGS (26)
  1. CAMZYOS [Suspect]
     Active Substance: MAVACAMTEN
     Indication: Hypertrophic cardiomyopathy
     Route: 048
     Dates: start: 20230404
  2. CELLCEPT [Concomitant]
     Active Substance: MYCOPHENOLATE MOFETIL
     Indication: Product used for unknown indication
  3. FROVA [Concomitant]
     Active Substance: FROVATRIPTAN SUCCINATE
     Indication: Product used for unknown indication
  4. NAPROXEN [Concomitant]
     Active Substance: NAPROXEN
     Indication: Product used for unknown indication
  5. BOTOX [Concomitant]
     Active Substance: ONABOTULINUMTOXINA
     Indication: Migraine
  6. BILASTINE [Concomitant]
     Active Substance: BILASTINE
     Indication: Product used for unknown indication
     Dosage: PRN
  7. AZELASTINE [Concomitant]
     Active Substance: AZELASTINE
     Indication: Product used for unknown indication
  8. FLUTICASONE [Concomitant]
     Active Substance: FLUTICASONE
     Indication: Product used for unknown indication
     Dosage: MDI
  9. LEVALBUTEROL [Concomitant]
     Active Substance: LEVALBUTEROL
     Indication: Product used for unknown indication
     Dosage: MDI
  10. CARTIA XT [Concomitant]
     Active Substance: DILTIAZEM HYDROCHLORIDE
     Indication: Product used for unknown indication
     Dosage: STARTED PRIOR TO CAMZYOS THERAPY INITIATED AND PATIENT STABLE
  11. VENLAFAXINE [Concomitant]
     Active Substance: VENLAFAXINE HYDROCHLORIDE
     Indication: Product used for unknown indication
     Dosage: MDI
  12. CLONAZEPAM [Concomitant]
     Active Substance: CLONAZEPAM
     Indication: Product used for unknown indication
     Dosage: PRN
  13. MAGNESIUM [Concomitant]
     Active Substance: MAGNESIUM
     Indication: Migraine
  14. FEVERFEW [HERBAL EXTRACT NOS] [Concomitant]
     Indication: Migraine
  15. VIT B2 [Concomitant]
     Indication: Migraine
  16. ZINC [Concomitant]
     Active Substance: ZINC
     Indication: Product used for unknown indication
  17. PREBIOTICS NOS;PROBIOTICS NOS [Concomitant]
     Indication: Product used for unknown indication
  18. VITAMINS [Concomitant]
     Active Substance: VITAMINS
     Indication: Product used for unknown indication
  19. VITAMIN C [Concomitant]
     Active Substance: ASCORBIC ACID
     Indication: Product used for unknown indication
  20. VIT D [VITAMIN D NOS] [Concomitant]
     Indication: Product used for unknown indication
  21. DIETARY SUPPLEMENT\HERBALS [Concomitant]
     Active Substance: DIETARY SUPPLEMENT\HERBALS
     Indication: Product used for unknown indication
  22. HERBALS\TURMERIC [Concomitant]
     Active Substance: HERBALS\TURMERIC
     Indication: Product used for unknown indication
  23. SERTRALINE [Concomitant]
     Active Substance: SERTRALINE HYDROCHLORIDE
     Indication: Product used for unknown indication
  24. COLLAGEN [Concomitant]
     Active Substance: COLLAGEN
     Indication: Product used for unknown indication
  25. HALOBETASOL [Concomitant]
     Active Substance: HALOBETASOL
     Indication: Product used for unknown indication
  26. TACROLIMUS [Concomitant]
     Active Substance: TACROLIMUS
     Indication: Product used for unknown indication

REACTIONS (3)
  - Polymyositis [Unknown]
  - Pulmonary fibrosis [Unknown]
  - Off label use [Unknown]

NARRATIVE: CASE EVENT DATE: 20251023
